FAERS Safety Report 13756156 (Version 3)
Quarter: 2018Q1

REPORT INFORMATION
  Report Type: Report from Study
  Country: US (occurrence: US)
  Receive Date: 20170714
  Receipt Date: 20180313
  Transmission Date: 20180508
  Serious: Yes (Hospitalization)
  Sender: FDA-Public Use
  Company Number: US-EXELIXIS-XL18417009762

PATIENT
  Age: 65 Year
  Sex: Male
  Weight: 51.66 kg

DRUGS (10)
  1. CITALOPRAM [Concomitant]
     Active Substance: CITALOPRAM HYDROBROMIDE
  2. MULTIVITAMIN [Concomitant]
     Active Substance: VITAMINS
  3. VANCOMYCIN [Concomitant]
     Active Substance: VANCOMYCIN
  4. PIPERACILLIN AND TAZOBACTAM [Concomitant]
     Active Substance: PIPERACILLIN SODIUM\TAZOBACTAM SODIUM
  5. ASPIRIN. [Concomitant]
     Active Substance: ASPIRIN
  6. LISINOPRIL. [Concomitant]
     Active Substance: LISINOPRIL
  7. EFAVIRENZ W/LAMIVUDINE/TENOFOVIR DISOPROXIL F [Concomitant]
     Active Substance: EFAVIRENZ\LAMIVUDINE\TENOFOVIR DISOPROXIL FUMARATE
  8. ARIPIPRAZOLE. [Concomitant]
     Active Substance: ARIPIPRAZOLE
  9. XL184 [Suspect]
     Active Substance: CABOZANTINIB
     Indication: NEOPLASM
     Dosage: 60 MG, QD
     Route: 048
     Dates: start: 20140121, end: 20170424
  10. ATORVASTATIN [Concomitant]
     Active Substance: ATORVASTATIN

REACTIONS (2)
  - Atrioventricular block complete [Recovering/Resolving]
  - Sinus bradycardia [Recovered/Resolved]

NARRATIVE: CASE EVENT DATE: 20170424
